FAERS Safety Report 10521393 (Version 1)
Quarter: 2014Q4

REPORT INFORMATION
  Report Type: Spontaneous
  Country: US (occurrence: None)
  Receive Date: 20141014
  Receipt Date: 20141014
  Transmission Date: 20150528
  Serious: Yes (Hospitalization)
  Sender: FDA-Public Use
  Company Number: None

PATIENT
  Age: 55 Year
  Sex: Female

DRUGS (1)
  1. SOVALDI [Suspect]
     Active Substance: SOFOSBUVIR
     Indication: HEPATITIS C
     Dosage: 1 TABLET
     Route: 048
     Dates: start: 20140902

REACTIONS (2)
  - Localised intraabdominal fluid collection [None]
  - Pyrexia [None]

NARRATIVE: CASE EVENT DATE: 20141008
